FAERS Safety Report 24531496 (Version 1)
Quarter: 2024Q4

REPORT INFORMATION
  Report Type: Report from Study
  Country: US (occurrence: US)
  Receive Date: 20241022
  Receipt Date: 20241022
  Transmission Date: 20250114
  Serious: No
  Sender: ROCHE
  Company Number: US-ROCHE-2585068

PATIENT
  Age: 38 Year
  Sex: Male

DRUGS (29)
  1. PULMOZYME [Suspect]
     Active Substance: DORNASE ALFA
     Indication: Bronchiectasis
     Dosage: NEBULAR SOLUTION ?STRENGTH: 1 MG/ML ?QUANTITY: 450 ML REFILL: 1 YEAR
     Route: 065
  2. PULMOZYME [Suspect]
     Active Substance: DORNASE ALFA
     Indication: Pneumonia
     Dosage: NEBULIZE THE CONTENTS OF 1 VIAL(S) TWICE A DAY
     Route: 065
  3. PULMOZYME [Suspect]
     Active Substance: DORNASE ALFA
     Route: 065
     Dates: start: 2015
  4. PULMOZYME [Suspect]
     Active Substance: DORNASE ALFA
     Route: 065
  5. ACETAMINOPHEN [Concomitant]
     Active Substance: ACETAMINOPHEN
  6. ACETYLCYSTEINE [Concomitant]
     Active Substance: ACETYLCYSTEINE
  7. PROVENTIL [Concomitant]
     Active Substance: ALBUTEROL
  8. AMMONIUM LACTATE [Concomitant]
     Active Substance: AMMONIUM LACTATE
  9. BECLOMETHASONE [Concomitant]
     Active Substance: BECLOMETHASONE
  10. BUDESONIDE [Concomitant]
     Active Substance: BUDESONIDE
  11. CHOLECALCIFEROL [Concomitant]
     Active Substance: CHOLECALCIFEROL
  12. CLINDAMYCIN AND BENZOYL PEROXIDE [Concomitant]
     Active Substance: BENZOYL PEROXIDE\CLINDAMYCIN PHOSPHATE
  13. CLOTRIMAZOLE [Concomitant]
     Active Substance: CLOTRIMAZOLE
  14. COMBIVENT RESPIMAT [Concomitant]
     Active Substance: ALBUTEROL SULFATE\IPRATROPIUM BROMIDE
  15. DESTIN [Concomitant]
  16. EPINEPHRINE [Concomitant]
     Active Substance: EPINEPHRINE
  17. DRISDOL [Concomitant]
     Active Substance: ERGOCALCIFEROL
  18. FLONASE [Concomitant]
     Active Substance: FLUTICASONE PROPIONATE
  19. IBUPROFEN [Concomitant]
     Active Substance: IBUPROFEN
  20. DUONEB [Concomitant]
     Active Substance: ALBUTEROL SULFATE\IPRATROPIUM BROMIDE
  21. LORATADINE [Concomitant]
     Active Substance: LORATADINE
  22. MONTELUKAST [Concomitant]
     Active Substance: MONTELUKAST
  23. BACTROBAN [Concomitant]
     Active Substance: BACTROBAN
  24. NEOSPORIN [Concomitant]
     Active Substance: BACITRACIN ZINC\NEOMYCIN SULFATE\POLYMYXIN B SULFATE
  25. NYSTOP [Concomitant]
     Active Substance: NYSTATIN
  26. PROAIR HFA [Concomitant]
     Active Substance: ALBUTEROL SULFATE
  27. SODIUM CHLORIDE [Concomitant]
     Active Substance: SODIUM CHLORIDE
  28. RECLAST [Concomitant]
     Active Substance: ZOLEDRONIC ACID
  29. SODIUM CHLORIDE [Concomitant]
     Active Substance: SODIUM CHLORIDE

REACTIONS (3)
  - Off label use [Unknown]
  - Hypoglycaemia [Unknown]
  - COVID-19 [Unknown]
